FAERS Safety Report 25501488 (Version 2)
Quarter: 2025Q3

REPORT INFORMATION
  Report Type: Spontaneous
  Country: IL (occurrence: IL)
  Receive Date: 20250701
  Receipt Date: 20250923
  Transmission Date: 20251021
  Serious: Yes (Hospitalization)
  Sender: AMGEN
  Company Number: IL-AMGEN-ISRSP2025125720

PATIENT
  Sex: Female

DRUGS (4)
  1. LUMAKRAS [Suspect]
     Active Substance: SOTORASIB
     Indication: Colorectal cancer metastatic
     Dosage: 960 MILLIGRAM, QD
     Route: 065
     Dates: start: 202506, end: 2025
  2. LUMAKRAS [Suspect]
     Active Substance: SOTORASIB
     Indication: K-ras gene mutation
     Dosage: 960 MILLIGRAM, QD, RESUMED
     Route: 065
     Dates: start: 2025
  3. VECTIBIX [Suspect]
     Active Substance: PANITUMUMAB
     Indication: Colorectal cancer metastatic
     Dosage: 6 MILLIGRAM/KILOGRAM, Q2WK
     Route: 065
  4. VECTIBIX [Suspect]
     Active Substance: PANITUMUMAB
     Indication: K-ras gene mutation
     Dosage: 6 MILLIGRAM/KILOGRAM, Q2WK, RESUMED
     Route: 065
     Dates: start: 2025

REACTIONS (3)
  - Device related infection [Recovering/Resolving]
  - Infection [Not Recovered/Not Resolved]
  - Off label use [Unknown]

NARRATIVE: CASE EVENT DATE: 20250601
